FAERS Safety Report 10141552 (Version 3)
Quarter: 2014Q2

REPORT INFORMATION
  Report Type: Spontaneous
  Country: FR (occurrence: FR)
  Receive Date: 20140429
  Receipt Date: 20140520
  Transmission Date: 20141212
  Serious: Yes (Life-Threatening, Hospitalization)
  Sender: FDA-Public Use
  Company Number: FR-VIIV HEALTHCARE LIMITED-B0556376A

PATIENT
  Age: 32 Year
  Sex: Female

DRUGS (14)
  1. ZIAGEN [Suspect]
     Indication: HIV INFECTION
     Route: 048
     Dates: start: 20081024, end: 20081024
  2. BACTRIM [Suspect]
     Indication: PROPHYLAXIS
     Route: 048
     Dates: start: 20081018, end: 20081023
  3. CONTRAMAL [Suspect]
     Indication: PRODUCT USED FOR UNKNOWN INDICATION
     Dosage: 50MG PER DAY
     Route: 048
     Dates: start: 20081024, end: 20081024
  4. FLUCONAZOLE [Suspect]
     Indication: PRODUCT USED FOR UNKNOWN INDICATION
     Dosage: 50MG FOUR TIMES PER DAY
     Route: 048
     Dates: start: 20081014, end: 20081023
  5. TRIZIVIR [Suspect]
     Indication: HIV INFECTION
     Route: 048
     Dates: start: 2002
  6. KIVEXA [Suspect]
     Indication: HIV INFECTION
     Route: 048
  7. KALETRA [Suspect]
     Indication: HIV INFECTION
     Route: 065
  8. ENFUVIRTIDE [Suspect]
     Indication: HIV INFECTION
     Route: 065
  9. LAMIVUDINE-HIV [Suspect]
     Indication: HIV INFECTION
     Route: 065
  10. VIRACEPT [Suspect]
     Indication: HIV INFECTION
     Dates: start: 2002
  11. SEROPRAM [Concomitant]
     Route: 065
  12. INIPOMP [Concomitant]
  13. STILNOX [Concomitant]
     Route: 048
  14. LEXOMIL [Concomitant]
     Route: 048

REACTIONS (14)
  - Hypersensitivity [Recovered/Resolved]
  - Circulatory collapse [Recovered/Resolved]
  - Lactic acidosis [Recovered/Resolved]
  - Transaminases increased [Recovered/Resolved]
  - Rhabdomyolysis [Recovered/Resolved]
  - Diarrhoea [Recovered/Resolved]
  - Vomiting [Recovered/Resolved]
  - Pyrexia [Recovered/Resolved]
  - Somnolence [Recovered/Resolved]
  - Hypotension [Recovered/Resolved]
  - Pruritus [Unknown]
  - Acute respiratory failure [Recovered/Resolved]
  - Rash [Recovered/Resolved]
  - Renal failure [Recovered/Resolved]
